FAERS Safety Report 20261638 (Version 2)
Quarter: 2022Q3

REPORT INFORMATION
  Report Type: Spontaneous
  Country: US (occurrence: US)
  Receive Date: 20211231
  Receipt Date: 20220713
  Transmission Date: 20221026
  Serious: Yes (Other)
  Sender: FDA-Public Use
  Company Number: US-BRISTOL-MYERS SQUIBB COMPANY-BMS-2021-141439

PATIENT
  Age: 76 Year
  Sex: Male
  Weight: 55.6 kg

DRUGS (4)
  1. NIVOLUMAB [Suspect]
     Active Substance: NIVOLUMAB
     Indication: Chronic lymphocytic leukaemia
     Dosage: 480 MILLIGRAM, ONE TIME DOSE
     Route: 042
     Dates: start: 20210331, end: 20210331
  2. UKONIQ [Suspect]
     Active Substance: UMBRALISIB TOSYLATE
     Indication: Chronic lymphocytic leukaemia
     Dosage: UNK
     Route: 065
     Dates: start: 20210405, end: 20210516
  3. UKONIQ [Suspect]
     Active Substance: UMBRALISIB TOSYLATE
     Dosage: UNK
     Route: 065
     Dates: start: 20210525
  4. METHOTREXATE [Concomitant]
     Active Substance: METHOTREXATE
     Indication: Product used for unknown indication
     Dosage: UNK
     Route: 065
     Dates: start: 202012

REACTIONS (3)
  - Lymphocytosis [Not Recovered/Not Resolved]
  - Organ failure [Unknown]
  - Intentional product use issue [Unknown]

NARRATIVE: CASE EVENT DATE: 20210405
